FAERS Safety Report 13460958 (Version 1)
Quarter: 2017Q2

REPORT INFORMATION
  Report Type: Spontaneous
  Country: AU (occurrence: AU)
  Receive Date: 20170420
  Receipt Date: 20170420
  Transmission Date: 20170830
  Serious: Yes (Disabling)
  Sender: FDA-Public Use
  Company Number: AU-009507513-1704AUS005023

PATIENT
  Age: 42 Year
  Sex: Female
  Weight: 55 kg

DRUGS (4)
  1. FOLIC ACID. [Concomitant]
     Active Substance: FOLIC ACID
  2. LEVOTHYROXINE SODIUM. [Concomitant]
     Active Substance: LEVOTHYROXINE SODIUM
  3. ORGALUTRAN [Suspect]
     Active Substance: GANIRELIX ACETATE
     Dosage: UNK, ON DAY 5
     Dates: start: 20161015
  4. GONAL-F [Suspect]
     Active Substance: FOLLITROPIN
     Dosage: 225 INTERNATIONAL U, QD
     Route: 058
     Dates: start: 20161011

REACTIONS (2)
  - Malaise [Recovered/Resolved with Sequelae]
  - Rash pruritic [Recovered/Resolved with Sequelae]

NARRATIVE: CASE EVENT DATE: 20161015
